FAERS Safety Report 6642676-4 (Version None)
Quarter: 2010Q1

REPORT INFORMATION
  Report Type: 
  Country: None (occurrence: None)
  Receive Date: 20100316
  Receipt Date: 20100304
  Transmission Date: 20100710
  Serious: Yes (Death)
  Sender: FDA-Public Use
  Company Number: 2010AL001487

PATIENT
  Sex: Male

DRUGS (2)
  1. PHENOBARBITAL TAB [Suspect]
  2. MIDAZOLAM HCL [Concomitant]

REACTIONS (6)
  - ABNORMAL BEHAVIOUR [None]
  - AGGRESSION [None]
  - INCORRECT DOSE ADMINISTERED [None]
  - PRODUCT PACKAGING QUANTITY ISSUE [None]
  - PRODUCT TAMPERING [None]
  - WITHDRAWAL SYNDROME [None]
